FAERS Safety Report 23124427 (Version 2)
Quarter: 2023Q4

REPORT INFORMATION
  Report Type: Spontaneous
  Country: US (occurrence: US)
  Receive Date: 20231030
  Receipt Date: 20231211
  Transmission Date: 20240109
  Serious: Yes (Other)
  Sender: FDA-Public Use
  Company Number: US-BEH-2023164649

PATIENT
  Age: 26 Year
  Sex: Male

DRUGS (4)
  1. CORIFACT [Suspect]
     Active Substance: FACTOR XIII CONCENTRATE (HUMAN)
     Indication: Haemophilia
     Dosage: 3872 INTERNATIONAL UNIT, EVERY 14 DAYS
     Route: 042
     Dates: start: 202211
  2. CORIFACT [Suspect]
     Active Substance: FACTOR XIII CONCENTRATE (HUMAN)
     Indication: Prophylaxis
     Dosage: 4182 INTERNATIONAL UNIT, QMT
     Route: 042
     Dates: start: 20230803
  3. CORIFACT [Suspect]
     Active Substance: FACTOR XIII CONCENTRATE (HUMAN)
     Dosage: 4182 INTERNATIONAL UNIT
     Route: 042
     Dates: start: 20230906
  4. CORIFACT [Suspect]
     Active Substance: FACTOR XIII CONCENTRATE (HUMAN)
     Dosage: UNK
     Route: 065

REACTIONS (4)
  - Haemorrhage [Recovered/Resolved]
  - Factor XIII inhibition [Not Recovered/Not Resolved]
  - Haematuria [Unknown]
  - Haematuria [Unknown]

NARRATIVE: CASE EVENT DATE: 20230902
